FAERS Safety Report 24223299 (Version 1)
Quarter: 2024Q3

REPORT INFORMATION
  Report Type: Spontaneous
  Country: US (occurrence: US)
  Receive Date: 20240819
  Receipt Date: 20240819
  Transmission Date: 20241017
  Serious: No
  Sender: ANI
  Company Number: US-ANIPHARMA-2023-US-043539

PATIENT
  Sex: 0

DRUGS (2)
  1. ARIMIDEX [Suspect]
     Active Substance: ANASTROZOLE
     Indication: Breast cancer
     Dosage: 1 MG WITH IBRANCE
     Route: 065
     Dates: start: 20231019, end: 20231109
  2. IBRANCE [Suspect]
     Active Substance: PALBOCICLIB
     Dosage: D1-21 EVERY 28 DAYS
     Route: 048
     Dates: start: 20231019

REACTIONS (2)
  - Rash [Recovered/Resolved]
  - Pruritus [Recovered/Resolved]

NARRATIVE: CASE EVENT DATE: 20231022
